FAERS Safety Report 7441818-0 (Version None)
Quarter: 2011Q2

REPORT INFORMATION
  Report Type: 
  Country: None (occurrence: None)
  Receive Date: 20110428
  Receipt Date: 20110415
  Transmission Date: 20111010
  Serious: Yes (Life-Threatening)
  Sender: FDA-Public Use
  Company Number: JP-CTI_01329_2011

PATIENT
  Sex: Female

DRUGS (8)
  1. MEIACT MS TABLET (CEFDITOREN PIVOXIL) [Suspect]
     Indication: NASOPHARYNGITIS
     Dosage: AFTER BREAKFAST
     Route: 048
     Dates: start: 20110308, end: 20110308
  2. PRAVASTATIN SODIUM [Concomitant]
     Indication: HYPERLIPIDAEMIA
     Route: 048
     Dates: start: 20041001
  3. ACDEAM (LYSOZYME HYDROCHLORIDE) [Suspect]
     Indication: NASOPHARYNGITIS
     Route: 048
     Dates: start: 20110308, end: 20110308
  4. BROTIZOLAM [Concomitant]
     Indication: INSOMNIA
     Route: 048
     Dates: start: 20041001
  5. CLOTIAZEPAM [Concomitant]
     Indication: ANXIETY DISORDER
     Route: 048
     Dates: start: 20041001
  6. VALSARTAN [Concomitant]
     Indication: HYPERTENSION
     Dates: start: 20041001
  7. ASPIRIN [Concomitant]
     Indication: CEREBRAL INFARCTION
     Route: 048
     Dates: start: 20041001
  8. NICERGOLINE [Concomitant]
     Indication: CEREBRAL INFARCTION
     Route: 048
     Dates: start: 20041001

REACTIONS (10)
  - RASH [None]
  - ALTERED STATE OF CONSCIOUSNESS [None]
  - STUPOR [None]
  - ASTHENIA [None]
  - PRURITUS [None]
  - ANAPHYLACTIC SHOCK [None]
  - SHOCK [None]
  - DYSPNOEA [None]
  - ERYTHEMA [None]
  - PULSE ABSENT [None]
